FAERS Safety Report 7503123-3 (Version None)
Quarter: 2011Q2

REPORT INFORMATION
  Report Type: 
  Country: None (occurrence: None)
  Receive Date: 20110525
  Receipt Date: 20110519
  Transmission Date: 20111010
  Serious: Yes (Hospitalization, Other)
  Sender: FDA-Public Use
  Company Number: US-PFIZER INC-2011108897

PATIENT
  Sex: Female

DRUGS (5)
  1. DEPAKOTE [Concomitant]
     Indication: CONVULSION
     Dosage: 500 MG, 3X/DAY
  2. DILANTIN [Suspect]
     Indication: CONVULSION
     Dosage: 400 MG, 1X/DAY
     Dates: start: 20000901, end: 20000920
  3. PROCARDIA XL [Concomitant]
     Dosage: 60 MG AT BED TIME
  4. MAVIK [Concomitant]
     Dosage: 2 MG, 1X/DAY
     Route: 048
  5. INSULIN [Concomitant]
     Dosage: UNK

REACTIONS (1)
  - STEVENS-JOHNSON SYNDROME [None]
